FAERS Safety Report 15865761 (Version 1)
Quarter: 2019Q1

REPORT INFORMATION
  Report Type: Spontaneous
  Country: US (occurrence: US)
  Receive Date: 20190125
  Receipt Date: 20190125
  Transmission Date: 20190417
  Serious: No
  Sender: FDA-Public Use
  Company Number: US-ELI_LILLY_AND_COMPANY-US201901004140

PATIENT
  Sex: Female

DRUGS (4)
  1. HUMALOG KWIKPEN [Suspect]
     Active Substance: INSULIN LISPRO
     Dosage: UNK, PRN (AT SLIDING SCALE, 3-4 TIMES PER DAY)
     Route: 058
  2. LEVEMIR [Concomitant]
     Active Substance: INSULIN DETEMIR
     Dosage: 16 U, EACH EVENING
     Route: 065
  3. LEVEMIR [Concomitant]
     Active Substance: INSULIN DETEMIR
     Indication: TYPE 1 DIABETES MELLITUS
     Dosage: 20 U, EACH MORNING
     Route: 065
  4. HUMALOG KWIKPEN [Suspect]
     Active Substance: INSULIN LISPRO
     Indication: TYPE 1 DIABETES MELLITUS
     Dosage: UNK, PRN (AT SLIDING SCALE, 3-4 TIMES PER DAY)
     Route: 058
     Dates: start: 201807

REACTIONS (6)
  - Wrong technique in product usage process [Unknown]
  - Blood glucose decreased [Unknown]
  - Product storage error [Unknown]
  - Accidental underdose [Unknown]
  - Blood glucose increased [Unknown]
  - Incorrect dose administered [Unknown]
